FAERS Safety Report 8564621-7 (Version None)
Quarter: 2012Q3

REPORT INFORMATION
  Report Type: 
  Country: None (occurrence: None)
  Receive Date: 20120803
  Receipt Date: 20120725
  Transmission Date: 20120928
  Serious: Yes (Hospitalization, Other)
  Sender: FDA-Public Use
  Company Number: US-SANOFI-AVENTIS-2012SA054169

PATIENT
  Age: 74 Year
  Sex: Male
  Weight: 89.7 kg

DRUGS (7)
  1. DOCETAXEL [Suspect]
     Route: 042
  2. AMOXICILLIN [Suspect]
     Route: 065
     Dates: start: 20120504
  3. BEVACIZUMAB [Suspect]
     Indication: PROSTATE CANCER
     Dosage: DOSE/FREQUENCY- 15 MG/KG OVER 30-90 MIN ON DAY 1 OF A CYCLE
     Route: 042
     Dates: start: 20100727
  4. AMOXICILLIN [Suspect]
     Dosage: PATINET TOOK EVERY 4 HOURS BY MISTAKE
     Route: 065
  5. PREDNISONE [Suspect]
     Indication: PROSTATE CANCER
     Route: 048
     Dates: start: 20100727
  6. LENALIDOMIDE [Suspect]
     Indication: PROSTATE CANCER
     Route: 048
     Dates: start: 20100727
  7. DOCETAXEL [Suspect]
     Indication: PROSTATE CANCER
     Dosage: FREQUENCY- 75 MG/M2 OVER 60 MIN ON DAY 1 OF A CYCLEDOCETAXEL WAS HELD FOR CUMULATIVE TOXICITIES
     Route: 042
     Dates: start: 20100727

REACTIONS (8)
  - FATIGUE [None]
  - DYSPNOEA [None]
  - WHEEZING [None]
  - DIARRHOEA [None]
  - NAUSEA [None]
  - NEUTROPHIL COUNT DECREASED [None]
  - HYPOXIA [None]
  - SYNCOPE [None]
